FAERS Safety Report 5891618-8 (Version None)
Quarter: 2008Q3

REPORT INFORMATION
  Report Type: 
  Country: None (occurrence: None)
  Receive Date: 20080922
  Receipt Date: 20080915
  Transmission Date: 20090109
  Serious: Yes (Other)
  Sender: FDA-Public Use
  Company Number: CA-PFIZER INC-2008073116

PATIENT
  Age: 35 Year
  Sex: Female

DRUGS (4)
  1. ZELDOX (CAPSULES) [Suspect]
     Route: 048
     Dates: start: 20080709, end: 20080819
  2. ATIVAN [Concomitant]
  3. CITALOPRAM HYDROBROMIDE [Concomitant]
  4. SEROQUEL [Concomitant]

REACTIONS (6)
  - CONFUSIONAL STATE [None]
  - DYSKINESIA [None]
  - MUSCLE SPASMS [None]
  - PALPITATIONS [None]
  - SOMNOLENCE [None]
  - TIC [None]
